FAERS Safety Report 6687848-8 (Version None)
Quarter: 2010Q2

REPORT INFORMATION
  Report Type: 
  Country: None (occurrence: None)
  Receive Date: 20100420
  Receipt Date: 20100415
  Transmission Date: 20101027
  Serious: Yes (Other)
  Sender: FDA-Public Use
  Company Number: US-PERRIGO-10US008854

PATIENT
  Age: 48 Year
  Sex: Male

DRUGS (8)
  1. ACETAMINOPHEN SLOW RELEASE [Suspect]
     Indication: MYALGIA
     Dosage: UNK, PRN
     Route: 048
  2. ACETAMINOPHEN SLOW RELEASE [Suspect]
     Indication: PYREXIA
  3. VANCOMYCIN [Concomitant]
     Indication: INTESTINAL PERFORATION
     Dosage: UNKNOWN
     Route: 065
  4. PIPERACILLIN W/TAZOBACTAM [Concomitant]
     Indication: INTESTINAL PERFORATION
     Dosage: UNKNOWN
     Route: 065
  5. ATORVASTATIN [Concomitant]
     Indication: DRUG USE FOR UNKNOWN INDICATION
     Dosage: UNKNOWN
     Route: 048
  6. PANTOPRAZOLE [Concomitant]
     Indication: DRUG USE FOR UNKNOWN INDICATION
     Route: 065
  7. MULTI-VITAMIN [Concomitant]
     Indication: SUPPLEMENTATION THERAPY
     Route: 048
  8. IRON [Concomitant]
     Indication: SUPPLEMENTATION THERAPY
     Dosage: UNKNOWN
     Route: 065

REACTIONS (5)
  - BLISTER [None]
  - DERMATITIS EXFOLIATIVE [None]
  - DRUG RASH WITH EOSINOPHILIA AND SYSTEMIC SYMPTOMS [None]
  - EOSINOPHILIA [None]
  - RENAL FAILURE [None]
